FAERS Safety Report 20150204 (Version 1)
Quarter: 2021Q4

REPORT INFORMATION
  Report Type: Spontaneous
  Country: US (occurrence: US)
  Receive Date: 20211206
  Receipt Date: 20211206
  Transmission Date: 20220303
  Serious: No
  Sender: FDA-Public Use
  Company Number: US-ALLERGAN-2107426US

PATIENT
  Age: 45 Year
  Sex: Female
  Weight: 74.84 kg

DRUGS (4)
  1. ELESTAT [Suspect]
     Active Substance: EPINASTINE HYDROCHLORIDE
     Indication: Product used for unknown indication
     Dosage: UNK
     Dates: start: 202101
  2. PFIZER-BIONTECH COVID-19 VACCINE [Suspect]
     Active Substance: TOZINAMERAN
     Dosage: UNK
     Dates: start: 20210202
  3. FLONASE [Concomitant]
     Active Substance: FLUTICASONE PROPIONATE
     Route: 045
  4. ALLERFEX [Concomitant]

REACTIONS (6)
  - Nasal congestion [Unknown]
  - Sneezing [Unknown]
  - Lacrimation increased [Unknown]
  - Cough [Unknown]
  - Drug ineffective [Unknown]
  - Eye pruritus [Unknown]

NARRATIVE: CASE EVENT DATE: 20210204
